FAERS Safety Report 16882175 (Version 1)
Quarter: 2019Q4

REPORT INFORMATION
  Report Type: Spontaneous
  Country: US (occurrence: US)
  Receive Date: 20191003
  Receipt Date: 20191003
  Transmission Date: 20200122
  Serious: No
  Sender: FDA-Public Use
  Company Number: US-SHIRE-US201932421

PATIENT
  Sex: Male

DRUGS (1)
  1. XIIDRA [Suspect]
     Active Substance: LIFITEGRAST
     Indication: DRY EYE
     Dosage: UNK UNK, 2X/DAY:BID
     Route: 047

REACTIONS (7)
  - Trichorrhexis [Unknown]
  - Hair texture abnormal [Unknown]
  - Vision blurred [Recovered/Resolved]
  - Eye irritation [Recovered/Resolved]
  - Eye pain [Unknown]
  - Taste disorder [Unknown]
  - Alopecia [Unknown]
